FAERS Safety Report 8116577 (Version 2)
Quarter: 2021Q3

REPORT INFORMATION
  Report Type: Report from Study
  Country: DE (occurrence: DE)
  Receive Date: 20110901
  Receipt Date: 20210707
  Transmission Date: 20211014
  Serious: Yes (Congenital Anomaly)
  Sender: FDA-Public Use
  Company Number: DE-UCBSA-030986

PATIENT

DRUGS (1)
  1. LACOSAMIDE. [Suspect]
     Active Substance: LACOSAMIDE
     Indication: EPILEPSY
     Route: 064

REACTIONS (2)
  - Congenital hydronephrosis [Recovered/Resolved]
  - Maternal exposure during pregnancy [Unknown]
